FAERS Safety Report 10365200 (Version 1)
Quarter: 2014Q3

REPORT INFORMATION
  Report Type: Spontaneous
  Country: US (occurrence: US)
  Receive Date: 20140806
  Receipt Date: 20140806
  Transmission Date: 20150326
  Serious: No
  Sender: FDA-Public Use
  Company Number: US-009507513-1407USA012051

PATIENT
  Age: 20 Year
  Sex: Female
  Weight: 78.4 kg

DRUGS (1)
  1. NEXPLANON [Suspect]
     Active Substance: ETONOGESTREL
     Indication: CONTRACEPTION
     Dosage: 1 STANDARD PACKAGE OF PF APPLI OF 1
     Route: 059
     Dates: start: 20140416, end: 201407

REACTIONS (5)
  - Acne [Unknown]
  - Breast tenderness [Unknown]
  - Device breakage [Recovered/Resolved]
  - Weight increased [Unknown]
  - Mood swings [Unknown]

NARRATIVE: CASE EVENT DATE: 2014
